FAERS Safety Report 7466364-X (Version None)
Quarter: 2011Q2

REPORT INFORMATION
  Report Type: 
  Country: None (occurrence: None)
  Receive Date: 20110509
  Receipt Date: 20100723
  Transmission Date: 20111010
  Serious: No
  Sender: FDA-Public Use
  Company Number: US-ALEXION-A201000877

PATIENT
  Sex: Female

DRUGS (4)
  1. COUMADIN [Concomitant]
     Dosage: UNK
  2. DARVOCET [Suspect]
     Indication: HEADACHE
     Dosage: UNK
     Dates: start: 20100721, end: 20100721
  3. BENADRYL [Suspect]
     Dosage: UNK
  4. SOLIRIS [Suspect]
     Indication: PAROXYSMAL NOCTURNAL HAEMOGLOBINURIA
     Dosage: 600 MG, UNK
     Route: 042
     Dates: start: 20100721

REACTIONS (4)
  - MUSCULOSKELETAL STIFFNESS [None]
  - HEADACHE [None]
  - DIZZINESS [None]
  - EUPHORIC MOOD [None]
